FAERS Safety Report 7530417-8 (Version None)
Quarter: 2011Q2

REPORT INFORMATION
  Report Type: 
  Country: None (occurrence: None)
  Receive Date: 20110607
  Receipt Date: 20110531
  Transmission Date: 20111010
  Serious: Yes (Other)
  Sender: FDA-Public Use
  Company Number: GR-ABBOTT-11P-066-0729303-00

PATIENT
  Age: 81 Year
  Sex: Male
  Weight: 78 kg

DRUGS (6)
  1. HUMIRA [Suspect]
     Indication: PSORIASIS
     Route: 058
     Dates: start: 20090430, end: 20110113
  2. ISRADIPINE [Concomitant]
     Indication: HYPERTENSION
  3. PRAMIPEXOLE DIHYDROCHLORIDE MONOHYDRATE [Concomitant]
     Indication: CEREBROVASCULAR ACCIDENT
  4. DORZOLAMIDE HYDROCHLORIDE AND TIMOLOL MALEATE [Concomitant]
     Indication: GLAUCOMA
     Route: 047
  5. CLOPIDOGREL [Concomitant]
     Indication: CEREBROVASCULAR ACCIDENT
  6. LEVODOPA + BENSERAZIDE HYDROCHLORIDE [Concomitant]
     Indication: CEREBROVASCULAR ACCIDENT

REACTIONS (3)
  - MOUTH ULCERATION [None]
  - SKIN ULCER [None]
  - VASCULITIS [None]
